FAERS Safety Report 4861446-0 (Version None)
Quarter: 2005Q4

REPORT INFORMATION
  Report Type: 
  Country: None (occurrence: None)
  Receive Date: 20051220
  Receipt Date: 20051209
  Transmission Date: 20060501
  Serious: Yes (Other)
  Sender: FDA-Public Use
  Company Number: CA-BRISTOL-MYERS SQUIBB COMPANY-13219704

PATIENT
  Age: 88 Year
  Sex: Female

DRUGS (5)
  1. TEQUIN [Suspect]
     Route: 042
  2. ATROVENT [Concomitant]
  3. COSOPT [Concomitant]
     Route: 047
  4. GATIFLOXACIN [Concomitant]
  5. VENTOLIN [Concomitant]

REACTIONS (2)
  - CONFUSIONAL STATE [None]
  - HYPOGLYCAEMIA [None]
